FAERS Safety Report 5208452-4 (Version None)
Quarter: 2006Q4

REPORT INFORMATION
  Report Type: 
  Country: None (occurrence: None)
  Receive Date: 20061027
  Receipt Date: 20051115
  Transmission Date: 20070319
  Serious: Yes (Other)
  Sender: FDA-Public Use
  Company Number: HQWYE948825MAY05

PATIENT
  Age: 59 Year
  Sex: Female
  Weight: 54.03 kg

DRUGS (5)
  1. PREMARIN [Suspect]
     Indication: HORMONE REPLACEMENT THERAPY
     Dosage: ORAL
     Route: 048
     Dates: start: 19920101, end: 20020101
  2. PREMARIN [Suspect]
     Indication: MENOPAUSAL SYMPTOMS
     Dosage: ORAL
     Route: 048
     Dates: start: 19920101, end: 20020101
  3. MEDROXYPROGESTERONE [Suspect]
  4. PROVERA [Suspect]
  5. UNSPECIFIED DIURETIC [Concomitant]

REACTIONS (1)
  - BREAST CANCER [None]
